FAERS Safety Report 19773538 (Version 1)
Quarter: 2021Q3

REPORT INFORMATION
  Report Type: Spontaneous
  Country: CN (occurrence: CN)
  Receive Date: 20210901
  Receipt Date: 20210901
  Transmission Date: 20211014
  Serious: Yes (Hospitalization)
  Sender: FDA-Public Use
  Company Number: CN-PFIZER INC-202101098673

PATIENT
  Age: 22 Month
  Sex: Female
  Weight: 10 kg

DRUGS (3)
  1. DEXAMETHASONE SODIUM PHOSPHATE. [Suspect]
     Active Substance: DEXAMETHASONE SODIUM PHOSPHATE
     Indication: ACUTE LYMPHOCYTIC LEUKAEMIA
     Dosage: 2.500 MG, 1X/DAY
     Route: 037
     Dates: start: 20210719, end: 20210719
  2. METHOTREXATE. [Suspect]
     Active Substance: METHOTREXATE
     Indication: ACUTE LYMPHOCYTIC LEUKAEMIA
     Dosage: 0.008 G, 1X/DAY
     Route: 037
     Dates: start: 20210719, end: 20210719
  3. CYTOSAR [Suspect]
     Active Substance: CYTARABINE
     Indication: ACUTE LYMPHOCYTIC LEUKAEMIA
     Dosage: 0.024 G, 1X/DAY
     Route: 037
     Dates: start: 20210719, end: 20210719

REACTIONS (1)
  - Granulocyte count decreased [Recovering/Resolving]

NARRATIVE: CASE EVENT DATE: 20210729
